FAERS Safety Report 4775149-4 (Version None)
Quarter: 2005Q3

REPORT INFORMATION
  Report Type: 
  Country: None (occurrence: None)
  Receive Date: 20050920
  Receipt Date: 20050911
  Transmission Date: 20060218
  Serious: Yes (Other)
  Sender: FDA-Public Use
  Company Number: US-2005-019031

PATIENT
  Age: 41 Year
  Sex: Female

DRUGS (1)
  1. BETASERON [Suspect]
     Indication: MULTIPLE SCLEROSIS
     Dosage: 8 MIU EVERY 2D SUBCUTANEOUS
     Route: 058
     Dates: start: 20050623

REACTIONS (5)
  - ASTHENIA [None]
  - DIARRHOEA [None]
  - HEADACHE [None]
  - VOMITING [None]
  - WHITE BLOOD CELL COUNT INCREASED [None]
